FAERS Safety Report 18847071 (Version 1)
Quarter: 2021Q1

REPORT INFORMATION
  Report Type: Report from Study
  Country: GB (occurrence: GB)
  Receive Date: 20210204
  Receipt Date: 20210204
  Transmission Date: 20210419
  Serious: Yes (Other)
  Sender: FDA-Public Use
  Company Number: GB-SAMSUNG BIOEPIS-SB-2020-29481

PATIENT
  Age: 34 Year
  Sex: Female

DRUGS (4)
  1. IMRALDI [Suspect]
     Active Substance: ADALIMUMAB
     Dosage: WEEK TWO
     Route: 058
  2. IMRALDI [Suspect]
     Active Substance: ADALIMUMAB
     Route: 058
  3. IMRALDI [Suspect]
     Active Substance: ADALIMUMAB
     Indication: COLITIS ULCERATIVE
     Dosage: WEEK ZERO
     Route: 058
     Dates: start: 20200812
  4. IMRALDI [Suspect]
     Active Substance: ADALIMUMAB
     Dosage: WEEK FOUR
     Route: 058

REACTIONS (10)
  - COVID-19 [Unknown]
  - Abdominal discomfort [Unknown]
  - Exercise tolerance decreased [Unknown]
  - Headache [Unknown]
  - Sleep disorder [Unknown]
  - Psoriasis [Unknown]
  - Diarrhoea [Unknown]
  - Pain in extremity [Unknown]
  - Influenza like illness [Unknown]
  - Mobility decreased [Unknown]
